FAERS Safety Report 11799825 (Version 3)
Quarter: 2016Q1

REPORT INFORMATION
  Report Type: Spontaneous
  Country: ZA (occurrence: ZA)
  Receive Date: 20151203
  Receipt Date: 20160202
  Transmission Date: 20160525
  Serious: Yes (Hospitalization, Other)
  Sender: FDA-Public Use
  Company Number: ZA-009507513-1512ZAF001001

PATIENT
  Age: 65 Year
  Sex: Male

DRUGS (12)
  1. GLUCOPHAGE [Concomitant]
     Active Substance: METFORMIN HYDROCHLORIDE
     Dosage: UNKNOWN
     Route: 048
     Dates: end: 20150219
  2. CRESTOR [Concomitant]
     Active Substance: ROSUVASTATIN CALCIUM
     Dosage: UNK
  3. DIOVAN [Concomitant]
     Active Substance: VALSARTAN
     Dosage: UNK
  4. PURICOS [Concomitant]
     Active Substance: ALLOPURINOL
     Dosage: UNK
  5. CARDICOR [Concomitant]
     Active Substance: BISOPROLOL
     Dosage: UNK
  6. HUMULIN N [Concomitant]
     Active Substance: INSULIN HUMAN
     Dosage: 30 U
  7. JANUVIA [Suspect]
     Active Substance: SITAGLIPTIN PHOSPHATE
     Dosage: UNK
     Route: 048
     Dates: start: 20150219, end: 20150928
  8. TAREG [Concomitant]
     Active Substance: VALSARTAN
     Dosage: UNK
  9. ATENOLOL. [Concomitant]
     Active Substance: ATENOLOL
     Dosage: UNK
  10. ADALAT CC [Concomitant]
     Active Substance: NIFEDIPINE
     Dosage: UNK
  11. DISPRIN CV [Concomitant]
     Dosage: UNK
  12. TENORETIC [Concomitant]
     Active Substance: ATENOLOL\CHLORTHALIDONE
     Dosage: UNK

REACTIONS (5)
  - Pancreatitis [Recovered/Resolved]
  - Ulcer [Recovered/Resolved]
  - Gastrooesophageal reflux disease [Recovered/Resolved]
  - Renal cortical necrosis [Recovered/Resolved]
  - Acute kidney injury [Recovered/Resolved with Sequelae]

NARRATIVE: CASE EVENT DATE: 2015
